FAERS Safety Report 20797629 (Version 1)
Quarter: 2022Q2

REPORT INFORMATION
  Report Type: Spontaneous
  Country: US (occurrence: None)
  Receive Date: 20220506
  Receipt Date: 20220506
  Transmission Date: 20220721
  Serious: Yes (Death, Other)
  Sender: FDA-Public Use
  Company Number: 2022A171432

PATIENT
  Age: 54 Year
  Sex: Male

DRUGS (1)
  1. SYMBICORT [Suspect]
     Active Substance: BUDESONIDE\FORMOTEROL FUMARATE DIHYDRATE
     Indication: Asthma
     Dosage: 160/4.5MCG UNKNOWN
     Route: 055
     Dates: start: 2013, end: 2015

REACTIONS (12)
  - Spinal disorder [Fatal]
  - Fall [Unknown]
  - Lower limb fracture [Recovering/Resolving]
  - Ligament injury [Recovering/Resolving]
  - Tendon injury [Recovering/Resolving]
  - Ankle fracture [Recovering/Resolving]
  - Peripheral swelling [Recovering/Resolving]
  - Asthma [Unknown]
  - Sleep apnoea syndrome [Unknown]
  - Weight decreased [Unknown]
  - Body height decreased [Unknown]
  - Memory impairment [Unknown]

NARRATIVE: CASE EVENT DATE: 20140101
